FAERS Safety Report 24957551 (Version 1)
Quarter: 2025Q1

REPORT INFORMATION
  Report Type: Report from Study
  Country: US (occurrence: US)
  Receive Date: 20250212
  Receipt Date: 20250212
  Transmission Date: 20250408
  Serious: Yes (Other)
  Sender: ABBVIE
  Company Number: US-ABBVIE-6119126

PATIENT
  Age: 42 Year
  Sex: Female

DRUGS (2)
  1. HUMIRA [Suspect]
     Active Substance: ADALIMUMAB
     Indication: Ankylosing spondylitis
     Route: 058
     Dates: start: 20200929, end: 20240401
  2. HYRIMOZ [Concomitant]
     Active Substance: ADALIMUMAB-ADAZ
     Indication: Product used for unknown indication
     Dates: start: 202404

REACTIONS (9)
  - Cholecystectomy [Unknown]
  - Abdominal pain upper [Unknown]
  - Femoral hernia [Unknown]
  - Constipation [Unknown]
  - Biliary colic [Unknown]
  - Umbilical hernia [Unknown]
  - Inguinal hernia [Unknown]
  - Abdominal distension [Unknown]
  - Nausea [Unknown]

NARRATIVE: CASE EVENT DATE: 20220101
